FAERS Safety Report 8797288 (Version 1)
Quarter: 2012Q4

REPORT INFORMATION
  Report Type: 
  Country: US (occurrence: US)
  Receive Date: 20120920
  Receipt Date: 20120920
  Transmission Date: 20130627
  Serious: No
  Sender: FDA-Public Use
  Company Number: US-BAYER-2012-097500

PATIENT
  Age: 64 Year
  Sex: Female
  Weight: 86.17 kg

DRUGS (4)
  1. CITRACAL [Suspect]
     Dosage: 1 DF, QD
     Route: 048
     Dates: start: 201205, end: 20120913
  2. ONE-A-DAY NOS [Concomitant]
  3. BAYER ASPIRIN REGIMEN ADULT LOW STRENGTH [Concomitant]
  4. FLAXSEED OIL [Concomitant]

REACTIONS (1)
  - Muscle spasms [Recovered/Resolved]
